FAERS Safety Report 7557962-3 (Version None)
Quarter: 2011Q2

REPORT INFORMATION
  Report Type: 
  Country: None (occurrence: None)
  Receive Date: 20110620
  Receipt Date: 20110609
  Transmission Date: 20111010
  Serious: Yes (Hospitalization)
  Sender: FDA-Public Use
  Company Number: IT-ASTRAZENECA-2011SE35479

PATIENT
  Sex: Male

DRUGS (4)
  1. LANTUS [Concomitant]
     Route: 058
  2. HUMALOG [Concomitant]
     Dosage: 3 TIMES PER DAY (6-6-8 IU)
     Route: 058
  3. SEROQUEL [Suspect]
     Route: 048
     Dates: start: 20110422, end: 20110425
  4. PROMAZINE HYDROCHLORIDE [Suspect]
     Dates: start: 20110422, end: 20110425

REACTIONS (1)
  - PSYCHOMOTOR SKILLS IMPAIRED [None]
